FAERS Safety Report 4579415-7 (Version None)
Quarter: 2005Q1

REPORT INFORMATION
  Report Type: 
  Country: None (occurrence: None)
  Receive Date: 20050209
  Receipt Date: 20050125
  Transmission Date: 20050727
  Serious: Yes (Hospitalization)
  Sender: FDA-Public Use
  Company Number: USA050189188

PATIENT
  Age: 86 Year
  Sex: Female
  Weight: 82 kg

DRUGS (1)
  1. HUMULIN 70/30 [Suspect]
     Indication: DIABETES MELLITUS
     Dosage: 28 U DAY

REACTIONS (6)
  - DIABETIC BULLOSIS [None]
  - IMPAIRED HEALING [None]
  - LEG AMPUTATION [None]
  - MALAISE [None]
  - PHARMACEUTICAL PRODUCT COMPLAINT [None]
  - WEIGHT INCREASED [None]
